FAERS Safety Report 10510137 (Version 1)
Quarter: 2014Q4

REPORT INFORMATION
  Report Type: Spontaneous
  Country: US (occurrence: None)
  Receive Date: 20141008
  Receipt Date: 20141008
  Transmission Date: 20150528
  Serious: Yes (Hospitalization)
  Sender: FDA-Public Use
  Company Number: USW201409-000220

PATIENT
  Age: 80 Year
  Sex: Male

DRUGS (1)
  1. APOKYN [Suspect]
     Active Substance: APOMORPHINE HYDROCHLORIDE
     Indication: PARKINSON^S DISEASE
     Dosage: 0.3 ML, 1-3 TIMES A DAY, SITE:ABDOMEN
     Route: 058
     Dates: start: 20140710

REACTIONS (2)
  - Abdominal pain upper [None]
  - Pain in extremity [None]

NARRATIVE: CASE EVENT DATE: 20140825
